FAERS Safety Report 5676595-7 (Version None)
Quarter: 2008Q1

REPORT INFORMATION
  Report Type: 
  Country: None (occurrence: None)
  Receive Date: 20080320
  Receipt Date: 20080320
  Transmission Date: 20080703
  Serious: Yes (Hospitalization)
  Sender: FDA-Public Use
  Company Number: None

PATIENT
  Age: 55 Year
  Sex: Male
  Weight: 99.7913 kg

DRUGS (2)
  1. CETUXIMAB [Suspect]
     Indication: COLON CANCER METASTATIC
     Dosage: 1075 MG Q2WEEKS IV
     Route: 042
     Dates: start: 20070816, end: 20080314
  2. IRINOTECAN HCL [Suspect]
     Indication: COLON CANCER METASTATIC
     Dosage: 290 MG Q2 WEEKS IV
     Route: 042
     Dates: start: 20070816, end: 20080314

REACTIONS (1)
  - SMALL INTESTINAL OBSTRUCTION [None]
